FAERS Safety Report 9856621 (Version 5)
Quarter: 2014Q1

REPORT INFORMATION
  Report Type: Report from Study
  Country: US (occurrence: US)
  Receive Date: 20140130
  Receipt Date: 20140324
  Transmission Date: 20141002
  Serious: Yes (Hospitalization)
  Sender: FDA-Public Use
  Company Number: US-PFIZER INC-2013364059

PATIENT
  Age: 59 Year
  Sex: Female
  Weight: 65.53 kg

DRUGS (24)
  1. BLINDED BUPROPION HCL [Suspect]
     Indication: SMOKING CESSATION THERAPY
     Dosage: BLINDED THERAPY, 2X/DAY
     Route: 048
     Dates: start: 20130917, end: 20130930
  2. BLINDED BUPROPION HCL [Suspect]
     Indication: SMOKING CESSATION THERAPY
     Dosage: BLINDED THERAPY, 2X/DAY
     Route: 048
     Dates: start: 20130917, end: 20130930
  3. BLINDED NICOTINE [Suspect]
     Indication: SMOKING CESSATION THERAPY
     Dosage: BLINDED THERAPY, 2X/DAY
     Route: 048
     Dates: start: 20130917, end: 20130930
  4. BLINDED NICOTINE [Suspect]
     Indication: SMOKING CESSATION THERAPY
     Dosage: BLINDED THERAPY, 2X/DAY
     Route: 048
     Dates: start: 20130917, end: 20130930
  5. BLINDED PLACEBO [Suspect]
     Indication: SMOKING CESSATION THERAPY
     Dosage: BLINDED THERAPY, 2X/DAY
     Route: 048
     Dates: start: 20130917, end: 20130930
  6. BLINDED PLACEBO [Suspect]
     Indication: SMOKING CESSATION THERAPY
     Dosage: BLINDED THERAPY, 2X/DAY
     Route: 048
     Dates: start: 20130917, end: 20130930
  7. BLINDED PLACEBO [Suspect]
     Indication: SMOKING CESSATION THERAPY
     Dosage: BLINDED THERAPY, 2X/DAY
     Route: 048
     Dates: start: 20130917, end: 20130930
  8. BLINDED VARENICLINE TARTRATE [Suspect]
     Indication: SMOKING CESSATION THERAPY
     Dosage: BLINDED THERAPY, 2X/DAY
     Route: 048
     Dates: start: 20130917, end: 20130930
  9. BLINDED VARENICLINE TARTRATE [Suspect]
     Indication: SMOKING CESSATION THERAPY
     Dosage: BLINDED THERAPY, 2X/DAY
     Route: 048
     Dates: start: 20130917, end: 20130930
  10. BLINDED BUPROPION HCL [Suspect]
     Dosage: BLINDED THERAPY, 1X/DAY
     Route: 062
     Dates: start: 20130924, end: 20130930
  11. BLINDED BUPROPION HCL [Suspect]
     Dosage: BLINDED THERAPY, 1X/DAY
     Route: 062
     Dates: start: 20130924, end: 20130930
  12. BLINDED NICOTINE [Suspect]
     Dosage: BLINDED THERAPY, 1X/DAY
     Route: 062
     Dates: start: 20130924, end: 20130930
  13. BLINDED NICOTINE [Suspect]
     Dosage: BLINDED THERAPY, 1X/DAY
     Route: 062
     Dates: start: 20130924, end: 20130930
  14. BLINDED PLACEBO [Suspect]
     Dosage: BLINDED THERAPY, 1X/DAY
     Route: 062
     Dates: start: 20130924, end: 20130930
  15. BLINDED PLACEBO [Suspect]
     Dosage: BLINDED THERAPY, 1X/DAY
     Route: 062
     Dates: start: 20130924, end: 20130930
  16. BLINDED PLACEBO [Suspect]
     Dosage: BLINDED THERAPY, 1X/DAY
     Route: 062
     Dates: start: 20130924, end: 20130930
  17. BLINDED VARENICLINE TARTRATE [Suspect]
     Dosage: BLINDED THERAPY, 1X/DAY
     Route: 062
     Dates: start: 20130924, end: 20130930
  18. BLINDED VARENICLINE TARTRATE [Suspect]
     Dosage: BLINDED THERAPY, 1X/DAY
     Route: 062
     Dates: start: 20130924, end: 20130930
  19. EFFEXOR [Suspect]
     Indication: DEPRESSION
     Dosage: 300 MG, DAILY
     Route: 048
     Dates: start: 20081001, end: 20130930
  20. SEROQUEL [Suspect]
     Indication: MANIA
     Dosage: 300 MG, DAILY
     Route: 048
     Dates: start: 20081001, end: 20130930
  21. TEGRETOL [Suspect]
     Indication: BIPOLAR DISORDER
     Dosage: 300 MG, DAILY
     Route: 048
     Dates: start: 20081001, end: 20130913
  22. TEGRETOL [Suspect]
     Dosage: 800 MG, DAILY
     Route: 048
     Dates: start: 20130913, end: 20130930
  23. IBUPROFEN [Concomitant]
     Indication: PAIN
     Dosage: 800 MG, 3X/DAY
     Route: 048
     Dates: start: 20130912, end: 20130930
  24. ACETAMINOPHEN W/CODEINE [Concomitant]
     Indication: PAIN
     Dosage: PARACETAMOL 300MG/ CODEINE 30MG, PRN
     Route: 048
     Dates: start: 20130914, end: 20130916

REACTIONS (1)
  - Neurological symptom [Recovered/Resolved]
